FAERS Safety Report 15637828 (Version 1)
Quarter: 2018Q4

REPORT INFORMATION
  Report Type: Spontaneous
  Country: US (occurrence: US)
  Receive Date: 20181120
  Receipt Date: 20181120
  Transmission Date: 20190205
  Serious: No
  Sender: FDA-Public Use
  Company Number: US-JNJFOC-20180605190

PATIENT
  Age: 75 Year
  Sex: Female

DRUGS (7)
  1. PROBIOTIC                          /06395501/ [Concomitant]
     Active Substance: BIFIDOBACTERIUM ANIMALIS LACTIS
  2. METOPROLOL. [Concomitant]
     Active Substance: METOPROLOL
  3. ONDANSETRON [Concomitant]
     Active Substance: ONDANSETRON
  4. CALCIUM [Concomitant]
     Active Substance: CALCIUM
  5. IMBRUVICA [Suspect]
     Active Substance: IBRUTINIB
     Indication: WALDENSTROM^S MACROGLOBULINAEMIA
     Route: 048
  6. OMEPRAZOLE. [Concomitant]
     Active Substance: OMEPRAZOLE
  7. VITAMIN D [Concomitant]
     Active Substance: CHOLECALCIFEROL

REACTIONS (3)
  - Alopecia [Unknown]
  - Fungal infection [Unknown]
  - Rash erythematous [Unknown]

NARRATIVE: CASE EVENT DATE: 201804
